FAERS Safety Report 5004074-9 (Version None)
Quarter: 2006Q2

REPORT INFORMATION
  Report Type: 
  Country: None (occurrence: None)
  Receive Date: 20060517
  Receipt Date: 20050302
  Transmission Date: 20061013
  Serious: Yes (Other)
  Sender: FDA-Public Use
  Company Number: PHRM2005FR00981

PATIENT
  Age: 28 Year
  Sex: Female
  Weight: 95 kg

DRUGS (1)
  1. GLEEVEC [Suspect]
     Indication: ACUTE LYMPHOCYTIC LEUKAEMIA
     Dosage: 800 MG DAILY
     Route: 048
     Dates: start: 20050128, end: 20050913

REACTIONS (3)
  - ACUTE LYMPHOCYTIC LEUKAEMIA RECURRENT [None]
  - DRUG EXPOSURE DURING PREGNANCY [None]
  - PREMATURE LABOUR [None]
